FAERS Safety Report 20151441 (Version 1)
Quarter: 2021Q4

REPORT INFORMATION
  Report Type: Spontaneous
  Country: PT (occurrence: PT)
  Receive Date: 20211206
  Receipt Date: 20211206
  Transmission Date: 20220303
  Serious: Yes (Hospitalization, Other)
  Sender: FDA-Public Use
  Company Number: PT-Hikma Pharmaceuticals USA Inc.-PT-H14001-21-04450

PATIENT
  Age: 37 Year
  Sex: Female
  Weight: 60 kg

DRUGS (11)
  1. REMIFENTANIL [Suspect]
     Active Substance: REMIFENTANIL
     Indication: General anaesthesia
     Dosage: UNK, (5-15 NG/ML)
  2. KETAMINE [Suspect]
     Active Substance: KETAMINE
     Indication: General anaesthesia
     Dosage: UNK (LOW RATE PERFUSION, 0.125MG/KG PER HOUR)
  3. PROPOFOL [Suspect]
     Active Substance: PROPOFOL
     Indication: General anaesthesia
     Dosage: UNK, (3-6 MCG/ML)
  4. ROCURONIUM [Suspect]
     Active Substance: ROCURONIUM BROMIDE
     Indication: Neuromuscular blockade
     Dosage: 0.6 MILLIGRAM/KILOGRAM
  5. ACETAMINOPHEN [Concomitant]
     Active Substance: ACETAMINOPHEN
     Indication: Analgesic therapy
     Dosage: 1000 MILLIGRAM
  6. ETANERCEPT [Concomitant]
     Active Substance: ETANERCEPT
     Indication: Psoriatic arthropathy
     Dosage: UNK
  7. KETOROLAC [Concomitant]
     Active Substance: KETOROLAC TROMETHAMINE
     Indication: Analgesic therapy
     Dosage: 30 MILLIGRAM
  8. MORPHINE [Concomitant]
     Active Substance: MORPHINE
     Indication: Analgesic therapy
     Dosage: 2 MILLIGRAM
  9. METHOTREXATE [Concomitant]
     Active Substance: METHOTREXATE
     Indication: Psoriatic arthropathy
     Dosage: UNK
  10. ROPIVACAINE [Concomitant]
     Active Substance: ROPIVACAINE
     Indication: Nerve block
     Dosage: UNK (20 ML)
  11. ROPIVACAINE [Concomitant]
     Active Substance: ROPIVACAINE
     Dosage: UNK (5ML EACH SIDE)

REACTIONS (2)
  - Chills [Recovered/Resolved]
  - Hypothermia [Recovered/Resolved]
